FAERS Safety Report 8611926-7 (Version None)
Quarter: 2012Q3

REPORT INFORMATION
  Report Type: 
  Country: None (occurrence: None)
  Receive Date: 20120822
  Receipt Date: 20120817
  Transmission Date: 20120928
  Serious: Yes (Hospitalization)
  Sender: FDA-Public Use
  Company Number: GB-ROCHE-798232

PATIENT
  Sex: Male
  Weight: 59.7 kg

DRUGS (11)
  1. AMITRIPTYLINE HYDROCHLORIDE [Concomitant]
     Dates: start: 20120727
  2. ACETAMINOPHEN [Concomitant]
  3. PREDNISOLONE [Concomitant]
     Dates: start: 20110813, end: 20110822
  4. PREDNISOLONE [Concomitant]
  5. RANITIDINE [Concomitant]
  6. ORAMORPH SR [Concomitant]
  7. MOVIPREP [Concomitant]
  8. ZELBORAF [Suspect]
     Indication: MALIGNANT MELANOMA
     Dosage: DATE OF LAST DOSE PRIOR TO SAE: 22 AUGUST 2011, TEMPORARILY INTERRUPTED
     Route: 048
     Dates: start: 20110817, end: 20110822
  9. IBUPROFEN [Concomitant]
  10. PREDNISOLONE [Concomitant]
  11. METOCLOPRAMIDE [Concomitant]

REACTIONS (1)
  - ANGIOEDEMA [None]
